FAERS Safety Report 6712500-X (Version None)
Quarter: 2010Q2

REPORT INFORMATION
  Report Type: 
  Country: None (occurrence: None)
  Receive Date: 20100505
  Receipt Date: 20100505
  Transmission Date: 20101027
  Serious: No
  Sender: FDA-Public Use
  Company Number: None

PATIENT
  Age: 83 Year
  Sex: Female
  Weight: 47.1741 kg

DRUGS (1)
  1. CYMBALTA [Suspect]
     Indication: PAIN
     Dosage: 30MG 2X A DAY

REACTIONS (4)
  - BURNING SENSATION [None]
  - HYPERSOMNIA [None]
  - NAUSEA [None]
  - PRURITUS [None]
